FAERS Safety Report 5377154-6 (Version None)
Quarter: 2007Q2

REPORT INFORMATION
  Report Type: 
  Country: None (occurrence: None)
  Receive Date: 20070629
  Receipt Date: 20070629
  Transmission Date: 20071010
  Serious: Yes (Hospitalization, Other)
  Sender: FDA-Public Use
  Company Number: None

PATIENT
  Age: 37 Year
  Sex: Male
  Weight: 58.9676 kg

DRUGS (2)
  1. CLINDAMYCIN HYDROCHLORIDE [Suspect]
     Indication: GINGIVAL INFECTION
     Dosage: 3 DAILY PO
     Route: 048
     Dates: start: 20070621, end: 20070627
  2. CLINDAMYCIN HYDROCHLORIDE [Suspect]
     Indication: TOOTH EXTRACTION
     Dosage: 3 DAILY PO
     Route: 048
     Dates: start: 20070621, end: 20070627

REACTIONS (6)
  - ACNE [None]
  - DIARRHOEA [None]
  - ERYTHEMA [None]
  - PRURITUS [None]
  - RASH [None]
  - RASH MACULAR [None]
